FAERS Safety Report 16372284 (Version 1)
Quarter: 2019Q2

REPORT INFORMATION
  Report Type: Spontaneous
  Country: US (occurrence: US)
  Receive Date: 20190424
  Receipt Date: 20190424
  Transmission Date: 20190711
  Serious: Yes (Hospitalization)
  Sender: FDA-Public Use
  Company Number: None

PATIENT
  Age: 59 Year
  Sex: Female

DRUGS (1)
  1. IMATINIB MES 400 MG TAB [Suspect]
     Active Substance: IMATINIB
     Indication: CHRONIC MYELOID LEUKAEMIA
     Route: 048
     Dates: start: 20160329

REACTIONS (5)
  - Muscle spasms [None]
  - Insomnia [None]
  - Fluid retention [None]
  - Glassy eyes [None]
  - Fatigue [None]

NARRATIVE: CASE EVENT DATE: 20190423
